FAERS Safety Report 6133009-0 (Version None)
Quarter: 2009Q1

REPORT INFORMATION
  Report Type: 
  Country: None (occurrence: None)
  Receive Date: 20090326
  Receipt Date: 20090319
  Transmission Date: 20090719
  Serious: Yes (Other)
  Sender: FDA-Public Use
  Company Number: BR-PFIZER INC-2009187157

PATIENT

DRUGS (2)
  1. LIPITOR [Suspect]
     Indication: DYSLIPIDAEMIA
     Dosage: 20 MG, UNK
  2. LIPITOR [Suspect]
     Indication: CORONARY ARTERY DISEASE

REACTIONS (1)
  - AMYOTROPHIC LATERAL SCLEROSIS [None]
